FAERS Safety Report 4902085-2 (Version None)
Quarter: 2006Q1

REPORT INFORMATION
  Report Type: 
  Country: None (occurrence: None)
  Receive Date: 20060206
  Receipt Date: 20060201
  Transmission Date: 20060701
  Serious: Yes (Other)
  Sender: FDA-Public Use
  Company Number: JP-JPN-A200600432

PATIENT
  Age: 78 Year
  Sex: Female
  Weight: 35 kg

DRUGS (12)
  1. ZOVIRAX [Suspect]
     Indication: HERPES ZOSTER
     Dosage: 200MG FIVE TIMES PER DAY
     Route: 048
     Dates: start: 20051230, end: 20060102
  2. VOLTAREN [Concomitant]
     Route: 054
  3. ALESION [Concomitant]
     Route: 048
  4. LOXONIN [Concomitant]
     Route: 048
  5. LAC B [Concomitant]
     Route: 048
  6. SELBEX [Concomitant]
     Route: 048
  7. ATARAX [Concomitant]
     Route: 048
  8. DOPS [Concomitant]
     Route: 048
  9. RISUMIC [Concomitant]
     Route: 048
  10. ALPRAZOLAM [Concomitant]
     Route: 048
  11. ZOVIRAX [Concomitant]
     Route: 061
  12. MERISLON [Concomitant]
     Route: 048

REACTIONS (3)
  - ASTHENIA [None]
  - DYSARTHRIA [None]
  - HALLUCINATION [None]
